FAERS Safety Report 9317977 (Version 3)
Quarter: 2013Q3

REPORT INFORMATION
  Report Type: Spontaneous
  Country: JP (occurrence: JP)
  Receive Date: 20130530
  Receipt Date: 20130719
  Transmission Date: 20140515
  Serious: Yes (Life-Threatening, Hospitalization, Other)
  Sender: FDA-Public Use
  Company Number: JP-PFIZER INC-2013163240

PATIENT
  Age: 50 Year
  Sex: Female
  Weight: 66 kg

DRUGS (2)
  1. LYRICA [Suspect]
     Indication: PAIN
     Dosage: 75 MG, 2X/DAY
     Route: 048
     Dates: start: 20130524, end: 20130528
  2. RHEUMATREX [Concomitant]
     Indication: RHEUMATIC DISORDER
     Dosage: 12 MG, FREQUENCY UNKNOWN
     Route: 048

REACTIONS (5)
  - Pulmonary oedema [Recovered/Resolved]
  - Respiratory failure [Unknown]
  - Face oedema [Recovered/Resolved]
  - Local swelling [Recovered/Resolved]
  - Pyrexia [Unknown]
